FAERS Safety Report 7570118-3 (Version None)
Quarter: 2011Q2

REPORT INFORMATION
  Report Type: 
  Country: None (occurrence: None)
  Receive Date: 20110624
  Receipt Date: 20110620
  Transmission Date: 20111010
  Serious: Yes (Other)
  Sender: FDA-Public Use
  Company Number: DE-BRISTOL-MYERS SQUIBB COMPANY-15719602

PATIENT
  Age: 54 Year
  Sex: Male
  Weight: 70 kg

DRUGS (1)
  1. ONGLYZA [Suspect]
     Indication: TYPE 2 DIABETES MELLITUS
     Dates: start: 20110228, end: 20110504

REACTIONS (2)
  - DERMATITIS ALLERGIC [None]
  - OEDEMA [None]
